FAERS Safety Report 12300895 (Version 1)
Quarter: 2016Q2

REPORT INFORMATION
  Report Type: Spontaneous
  Country: JP (occurrence: JP)
  Receive Date: 20160425
  Receipt Date: 20160425
  Transmission Date: 20160815
  Serious: Yes (Death)
  Sender: FDA-Public Use
  Company Number: PHJP2016JP010548

PATIENT
  Age: 79 Year
  Sex: Female

DRUGS (1)
  1. CICLOSPORIN [Suspect]
     Active Substance: CYCLOSPORINE
     Indication: STILL^S DISEASE ADULT ONSET
     Dosage: UNK
     Route: 048

REACTIONS (2)
  - Infection [Fatal]
  - Product use issue [Unknown]
